FAERS Safety Report 9198340 (Version 1)
Quarter: 2013Q1

REPORT INFORMATION
  Report Type: Spontaneous
  Country: US (occurrence: None)
  Receive Date: 20130327
  Receipt Date: 20130327
  Transmission Date: 20140127
  Serious: No
  Sender: FDA-Public Use
  Company Number: None

PATIENT
  Age: 68 Year
  Sex: Female
  Weight: 68.2 kg

DRUGS (5)
  1. AXONA [Suspect]
     Indication: DEMENTIA ALZHEIMER^S TYPE
     Route: 048
     Dates: start: 201301, end: 201302
  2. ARICEPT [Concomitant]
  3. UNSPECIFIED ANTIDEPRESSANT [Concomitant]
  4. VITAMINS [Concomitant]
  5. FISH OIL [Concomitant]

REACTIONS (3)
  - Foaming at mouth [None]
  - Loss of consciousness [None]
  - Hypoaesthesia [None]
